FAERS Safety Report 10702170 (Version 1)
Quarter: 2015Q1

REPORT INFORMATION
  Report Type: Spontaneous
  Country: US (occurrence: US)
  Receive Date: 20150109
  Receipt Date: 20150109
  Transmission Date: 20150721
  Serious: No
  Sender: FDA-Public Use
  Company Number: US-BRISTOL-MYERS SQUIBB COMPANY-BMS-2014-004398

PATIENT
  Age: 35 Year
  Sex: Male

DRUGS (1)
  1. KENALOG-10 [Suspect]
     Active Substance: TRIAMCINOLONE ACETONIDE
     Indication: HYPERKERATOSIS
     Route: 058

REACTIONS (2)
  - Skin burning sensation [Unknown]
  - Urticaria [Unknown]
